FAERS Safety Report 5256645-2 (Version None)
Quarter: 2007Q1

REPORT INFORMATION
  Report Type: 
  Country: None (occurrence: None)
  Receive Date: 20070306
  Receipt Date: 20070222
  Transmission Date: 20070707
  Serious: Yes (Other)
  Sender: FDA-Public Use
  Company Number: GB-PFIZER INC-2007015283

PATIENT
  Age: 33 Year
  Sex: Male

DRUGS (15)
  1. LYRICA [Suspect]
     Route: 048
  2. CALCORT [Concomitant]
  3. LIPITOR [Concomitant]
  4. SEVREDOL [Concomitant]
  5. ALL OTHER THERAPEUTIC PRODUCTS [Concomitant]
  6. SPIROLACTONE [Concomitant]
  7. CELLCEPT [Concomitant]
  8. QUINAPRIL [Concomitant]
  9. FUROSEMIDE [Concomitant]
  10. ACETAMINOPHEN W/ CODEINE [Concomitant]
  11. TRANSTEC TTS [Concomitant]
  12. DIAZEPAM [Concomitant]
  13. TEMAZEPAM [Concomitant]
  14. PIRITON [Concomitant]
  15. WARFARIN SODIUM [Concomitant]

REACTIONS (5)
  - FEELING DRUNK [None]
  - IMPAIRED DRIVING ABILITY [None]
  - LIMB DISCOMFORT [None]
  - MUSCLE TWITCHING [None]
  - NAUSEA [None]
